FAERS Safety Report 11249293 (Version 1)
Quarter: 2015Q3

REPORT INFORMATION
  Report Type: Spontaneous
  Country: US (occurrence: US)
  Receive Date: 20150708
  Receipt Date: 20150708
  Transmission Date: 20151125
  Serious: No
  Sender: FDA-Public Use
  Company Number: US-ELI_LILLY_AND_COMPANY-US201001002708

PATIENT
  Sex: Female

DRUGS (3)
  1. DECADRON [Concomitant]
     Active Substance: DEXAMETHASONE
     Route: 042
  2. ALIMTA [Suspect]
     Active Substance: PEMETREXED DISODIUM
  3. FOLIC ACID. [Concomitant]
     Active Substance: FOLIC ACID

REACTIONS (2)
  - Iron deficiency [Unknown]
  - Rash [Unknown]
